FAERS Safety Report 4483623-3 (Version None)
Quarter: 2004Q4

REPORT INFORMATION
  Report Type: 
  Country: None (occurrence: None)
  Receive Date: 20041021
  Receipt Date: 20041021
  Transmission Date: 20050328
  Serious: Yes (Life-Threatening, Hospitalization)
  Sender: FDA-Public Use
  Company Number: None

PATIENT
  Age: 64 Year
  Sex: Male
  Weight: 89 kg

DRUGS (27)
  1. TAXOTERE [Suspect]
     Indication: OESOPHAGEAL CARCINOMA
     Dosage: 21.675 IV
     Route: 042
     Dates: start: 20040312, end: 20040928
  2. CISPLATIN [Suspect]
     Indication: OESOPHAGEAL CARCINOMA
     Dosage: 25 IV
     Route: 042
     Dates: start: 20040312, end: 20040928
  3. CPT-11 (MG/M2) DAYS 1 AND 8 OF 8 OF 21 DAY CYCLE [Suspect]
     Indication: OESOPHAGEAL CARCINOMA
     Dosage: 36.125  IV
     Route: 042
     Dates: start: 20040312, end: 20040928
  4. ASPIRIN [Concomitant]
  5. ATARAX [Concomitant]
  6. ATIVAN [Concomitant]
  7. CELEXA [Concomitant]
  8. COLACE [Concomitant]
  9. COMPAZINE [Concomitant]
  10. DECADRON [Concomitant]
  11. DIGOXIN [Concomitant]
  12. DURAGESIC [Concomitant]
  13. EMENO [Concomitant]
  14. FERROUS SULFATE TAB [Concomitant]
  15. LACTULOSE SUSPENSION [Concomitant]
  16. LIPITOR [Concomitant]
  17. LOVENOX [Concomitant]
  18. MAGNESIUM [Concomitant]
  19. MEGACE [Concomitant]
  20. NEULESTA [Concomitant]
  21. NEURONTIN [Concomitant]
  22. SODIUM CHLORIDE 0.9% [Concomitant]
  23. PROTONIX [Concomitant]
  24. PROVIGIL [Concomitant]
  25. SENNA TABLETS [Concomitant]
  26. TOPROL-XL [Concomitant]
  27. ZOFRAN [Concomitant]

REACTIONS (5)
  - BLOOD POTASSIUM DECREASED [None]
  - COMPUTERISED TOMOGRAM ABNORMAL [None]
  - METASTASES TO LIVER [None]
  - OESOPHAGEAL DISORDER [None]
  - TROPONIN I INCREASED [None]
